FAERS Safety Report 6929781-X (Version None)
Quarter: 2010Q3

REPORT INFORMATION
  Report Type: 
  Country: None (occurrence: None)
  Receive Date: 20100818
  Receipt Date: 20100804
  Transmission Date: 20110219
  Serious: Yes (Hospitalization, Other)
  Sender: FDA-Public Use
  Company Number: PHHY2010US27251

PATIENT
  Sex: Male
  Weight: 75.3 kg

DRUGS (12)
  1. EXJADE [Suspect]
     Indication: MYELODYSPLASTIC SYNDROME
     Dosage: 1500 MG, QD
     Route: 048
     Dates: start: 20100312, end: 20100411
  2. EXJADE [Suspect]
     Indication: IRON OVERLOAD
  3. LOTRISONE [Concomitant]
  4. FLOMAX [Concomitant]
     Dosage: 0.4 MG, UNK
  5. ACETAMINOPHEN [Concomitant]
     Dosage: 650 MG, UNK
  6. NYSTATIN [Concomitant]
     Route: 061
  7. KEPPRA [Concomitant]
     Dosage: 250 MG, UNK
  8. TRAVOPROST [Concomitant]
     Dosage: 0.004 %, UNK
  9. COMBIGAN [Concomitant]
  10. NORCO [Concomitant]
     Dosage: 1 DF, QD
     Route: 048
  11. SENNA [Concomitant]
     Dosage: 1 DF, PRN
     Route: 048
  12. AMOXICILLIN [Concomitant]
     Dosage: 500 MG, TID
     Route: 048

REACTIONS (12)
  - BRAIN OPERATION [None]
  - DISCOMFORT [None]
  - FALL [None]
  - GASTROINTESTINAL TUBE INSERTION [None]
  - HAEMATURIA [None]
  - HYPOPHAGIA [None]
  - LIVER FUNCTION TEST ABNORMAL [None]
  - MUSCULAR WEAKNESS [None]
  - PANCYTOPENIA [None]
  - THROMBOCYTOPENIA [None]
  - URINARY TRACT INFECTION [None]
  - WEIGHT DECREASED [None]
